FAERS Safety Report 18429513 (Version 1)
Quarter: 2020Q4

REPORT INFORMATION
  Report Type: Spontaneous
  Country: US (occurrence: US)
  Receive Date: 20201026
  Receipt Date: 20201026
  Transmission Date: 20210114
  Serious: No
  Sender: FDA-Public Use
  Company Number: US-DERMIRA, INC.-US-2020DER000197

PATIENT
  Age: 14 Year
  Sex: Female
  Weight: 81.63 kg

DRUGS (2)
  1. GLYCOPYRROLATE                     /00196201/ [Concomitant]
     Active Substance: GLYCOPYRRONIUM
     Indication: HYPERHIDROSIS
     Dosage: UNK, BID
     Route: 065
     Dates: start: 202006
  2. QBREXZA [Suspect]
     Active Substance: GLYCOPYRRONIUM TOSYLATE
     Indication: HYPERHIDROSIS
     Dosage: UNK, UNK, ONCE ONLY
     Route: 061
     Dates: start: 20200819, end: 20200819

REACTIONS (6)
  - Vision blurred [Recovered/Resolved]
  - Headache [Not Recovered/Not Resolved]
  - Wrong technique in product usage process [Unknown]
  - Off label use [Unknown]
  - Mydriasis [Recovered/Resolved]
  - Dyschromatopsia [Unknown]

NARRATIVE: CASE EVENT DATE: 20200819
